FAERS Safety Report 7301409-9 (Version None)
Quarter: 2011Q1

REPORT INFORMATION
  Report Type: 
  Country: None (occurrence: None)
  Receive Date: 20110113
  Receipt Date: 20100917
  Transmission Date: 20110831
  Serious: No
  Sender: FDA-Public Use
  Company Number: US-001301

PATIENT
  Sex: Female
  Weight: 170 kg

DRUGS (5)
  1. NASONEX [Concomitant]
  2. KUVAN [Suspect]
     Indication: PHENYLKETONURIA
     Dosage: 1500 MG QD ORAL
     Route: 048
     Dates: start: 20100910
  3. CLARITIN [Concomitant]
  4. MIDRIN [Concomitant]
  5. MECLIZINE [Concomitant]

REACTIONS (2)
  - DYSPEPSIA [None]
  - THROAT IRRITATION [None]
